FAERS Safety Report 23300312 (Version 2)
Quarter: 2024Q4

REPORT INFORMATION
  Report Type: Spontaneous
  Country: CA (occurrence: None)
  Receive Date: 20231215
  Receipt Date: 20241030
  Transmission Date: 20250115
  Serious: Yes (Other)
  Sender: ORION
  Company Number: CA-PFIZER INC-202300442626

PATIENT
  Age: 59 Year
  Sex: Female
  Weight: 71 kg

DRUGS (7)
  1. METHOTREXATE [Suspect]
     Active Substance: METHOTREXATE
     Indication: Crohn^s disease
     Dosage: (2.5 X 6 ONCE A WEEK)
  2. INFLECTRA [Concomitant]
     Active Substance: INFLIXIMAB-DYYB
     Indication: Crohn^s disease
     Dosage: Q 0, 2, 6 WEEKS THEN EVERY 8 WEEKS
     Dates: start: 20221220, end: 20230717
  3. INFLECTRA [Concomitant]
     Active Substance: INFLIXIMAB-DYYB
     Dates: start: 20230815
  4. INFLECTRA [Concomitant]
     Active Substance: INFLIXIMAB-DYYB
     Dosage: ONGOING
     Dates: start: 20231204
  5. ONDANSETRON [Concomitant]
     Active Substance: ONDANSETRON
     Dosage: ONGOING
  6. SCOPOLAMINE [Concomitant]
     Active Substance: SCOPOLAMINE
     Dosage: ONGOING
  7. PANTOPRAZOLE [Concomitant]
     Active Substance: PANTOPRAZOLE
     Dosage: ONGOING

REACTIONS (6)
  - Fistula [Not Recovered/Not Resolved]
  - Abscess [Not Recovered/Not Resolved]
  - Drug ineffective for unapproved indication [Unknown]
  - Product use in unapproved indication [Unknown]
  - Impaired quality of life [Unknown]
  - Nausea [Unknown]

NARRATIVE: CASE EVENT DATE: 20230101
